FAERS Safety Report 8028245-2 (Version None)
Quarter: 2011Q4

REPORT INFORMATION
  Report Type: 
  Country: None (occurrence: None)
  Receive Date: 20111130
  Receipt Date: 20110711
  Transmission Date: 20120403
  Serious: Yes (Other)
  Sender: FDA-Public Use
  Company Number: US200910005437

PATIENT
  Sex: Male
  Weight: 172.8 kg

DRUGS (6)
  1. BYETTA [Suspect]
     Dates: start: 20070126, end: 20080101
  2. LOTENSIN [Concomitant]
  3. AVANDIA [Concomitant]
  4. CELEBREX [Concomitant]
  5. EXENATIDE UNK STRENGTH PEN, DISPOSABLE DEVICE (EXENATIDE PEN (UNKNOWN [Concomitant]
  6. METFORMIN HCL [Concomitant]

REACTIONS (9)
  - RENAL DISORDER [None]
  - ABDOMINAL PAIN UPPER [None]
  - CHOLELITHIASIS [None]
  - NAUSEA [None]
  - KIDNEY INFECTION [None]
  - RENAL COLIC [None]
  - RENAL FAILURE [None]
  - CALCULUS URETERIC [None]
  - PANCREAS INFECTION [None]
